FAERS Safety Report 6294892-1 (Version None)
Quarter: 2009Q3

REPORT INFORMATION
  Report Type: 
  Country: None (occurrence: None)
  Receive Date: 20090803
  Receipt Date: 20090617
  Transmission Date: 20100115
  Serious: Yes (Death, Disabling, Other)
  Sender: FDA-Public Use
  Company Number: CH-BAYER-200921039GPV

PATIENT
  Age: 72 Year
  Sex: Male
  Weight: 90 kg

DRUGS (17)
  1. REFLUDAN [Suspect]
     Indication: HEPARIN-INDUCED THROMBOCYTOPENIA
     Dosage: 0.005 MG/KG/HOUR ( OVER 1 MONTH)
     Route: 042
     Dates: start: 20090323, end: 20090427
  2. DANAPAROID [Concomitant]
     Indication: HEPARIN-INDUCED THROMBOCYTOPENIA
     Dates: start: 20090309
  3. PROPOFOL [Concomitant]
     Indication: SEDATION
     Dates: start: 20090305
  4. FENTANYL [Concomitant]
     Indication: DRUG USE FOR UNKNOWN INDICATION
  5. ESOMEPRAZOLE MAGNESIUM [Concomitant]
     Indication: DRUG USE FOR UNKNOWN INDICATION
  6. MEROPENEM [Concomitant]
     Indication: ANTIBIOTIC THERAPY
     Dates: start: 20090317, end: 20090408
  7. MEROPENEM [Concomitant]
     Dates: start: 20090428
  8. FUROSEMIDE [Concomitant]
     Indication: DRUG USE FOR UNKNOWN INDICATION
     Route: 042
     Dates: start: 20090305
  9. TIMENTIN [Concomitant]
     Indication: INFECTION
     Dates: end: 20090317
  10. VANCOMYCIN [Concomitant]
     Indication: INFECTION
     Dates: start: 20090428
  11. VANCOMYCIN [Concomitant]
     Dates: end: 20090317
  12. MIDAZOLAM HCL [Concomitant]
     Indication: SEDATION
  13. DOPAMINE HYDROCHLORIDE [Concomitant]
     Indication: DRUG USE FOR UNKNOWN INDICATION
     Dates: start: 20090305
  14. NORADRENALIN [Concomitant]
     Indication: DRUG USE FOR UNKNOWN INDICATION
     Dates: start: 20090305
  15. FLUCONAZOLE [Concomitant]
     Indication: DRUG USE FOR UNKNOWN INDICATION
     Dates: end: 20090326
  16. SERTRALINE [Concomitant]
     Indication: DRUG USE FOR UNKNOWN INDICATION
     Dates: start: 20090408
  17. RANITIDINE [Concomitant]
     Indication: DRUG USE FOR UNKNOWN INDICATION

REACTIONS (2)
  - HAEMORRHAGE [None]
  - MULTI-ORGAN FAILURE [None]
